FAERS Safety Report 23374050 (Version 1)
Quarter: 2024Q1

REPORT INFORMATION
  Report Type: Spontaneous
  Country: CN (occurrence: CN)
  Receive Date: 20240105
  Receipt Date: 20240105
  Transmission Date: 20240410
  Serious: Yes (Other)
  Sender: FDA-Public Use
  Company Number: CN-TAKEDA-2023TUS124286

PATIENT
  Age: 74 Year
  Sex: Male
  Weight: 52 kg

DRUGS (4)
  1. ADCETRIS [Suspect]
     Active Substance: BRENTUXIMAB VEDOTIN
     Indication: Peripheral T-cell lymphoma unspecified
     Dosage: 100 MILLIGRAM, QD
     Route: 041
     Dates: start: 20231020, end: 20231020
  2. CYCLOPHOSPHAMIDE [Suspect]
     Active Substance: CYCLOPHOSPHAMIDE
     Indication: Peripheral T-cell lymphoma unspecified
     Dosage: 1 GRAM, QD
     Route: 041
     Dates: start: 20231020, end: 20231020
  3. DOXORUBICIN HYDROCHLORIDE [Suspect]
     Active Substance: DOXORUBICIN HYDROCHLORIDE
     Indication: Peripheral T-cell lymphoma unspecified
     Dosage: 40 MILLIGRAM, QD
     Route: 041
     Dates: start: 20231020, end: 20231020
  4. PREDNISONE ACETATE [Suspect]
     Active Substance: PREDNISONE ACETATE
     Indication: Peripheral T-cell lymphoma unspecified
     Dosage: 50 MILLIGRAM, BID
     Route: 048
     Dates: start: 20231020, end: 20231024

REACTIONS (1)
  - Myelosuppression [Recovering/Resolving]

NARRATIVE: CASE EVENT DATE: 20231029
